FAERS Safety Report 4320629-9 (Version None)
Quarter: 2004Q1

REPORT INFORMATION
  Report Type: 
  Country: None (occurrence: None)
  Receive Date: 20040315
  Receipt Date: 20030318
  Transmission Date: 20041129
  Serious: Yes (Hospitalization)
  Sender: FDA-Public Use
  Company Number: USA030331748

PATIENT
  Sex: Female

DRUGS (1)
  1. GEMZAR [Suspect]

REACTIONS (1)
  - PNEUMONIA [None]
